FAERS Safety Report 7736762-5 (Version None)
Quarter: 2011Q3

REPORT INFORMATION
  Report Type: 
  Country: None (occurrence: None)
  Receive Date: 20110908
  Receipt Date: 20110902
  Transmission Date: 20111222
  Serious: Yes (Hospitalization)
  Sender: FDA-Public Use
  Company Number: PHHY2011US69618

PATIENT
  Sex: Male

DRUGS (1)
  1. EXJADE [Suspect]
     Indication: REFRACTORY ANAEMIA
     Dosage: 1500 MG, QD
     Route: 048

REACTIONS (3)
  - FATIGUE [None]
  - JAUNDICE CHOLESTATIC [None]
  - DIARRHOEA [None]
